FAERS Safety Report 4597516-4 (Version None)
Quarter: 2005Q1

REPORT INFORMATION
  Report Type: 
  Country: None (occurrence: None)
  Receive Date: 20050228
  Receipt Date: 20050228
  Transmission Date: 20050727
  Serious: Yes (Other)
  Sender: FDA-Public Use
  Company Number: None

PATIENT
  Age: 26 Year
  Sex: Male
  Weight: 68.9467 kg

DRUGS (1)
  1. DESMOPRESSIN NASAN SPRAY 0.7 % SOLUTION (GENERIC) [Suspect]
     Indication: DIABETES INSIPIDUS
     Dosage: 1 SPRAY /NASAL /1-2X /DAY
     Route: 045
     Dates: start: 20041001

REACTIONS (2)
  - EPISTAXIS [None]
  - URINE ANALYSIS ABNORMAL [None]
